FAERS Safety Report 4731557-9 (Version None)
Quarter: 2005Q3

REPORT INFORMATION
  Report Type: 
  Country: None (occurrence: None)
  Receive Date: 20050721
  Receipt Date: 20050621
  Transmission Date: 20060218
  Serious: Yes (Other)
  Sender: FDA-Public Use
  Company Number: 2005075870

PATIENT
  Age: 55 Year
  Sex: Male
  Weight: 74.8435 kg

DRUGS (10)
  1. INSPRA [Suspect]
     Indication: CARDIAC FAILURE CONGESTIVE
     Dosage: 25 MG (25 MG,DAILY  INTERVAL: EVERY DAY)
     Dates: start: 20050101
  2. FUROSEMIDE [Suspect]
     Indication: ILL-DEFINED DISORDER
     Dosage: (QID  INTERVAL: DAILY)
     Dates: start: 20030101
  3. LITHIUM CARBONATE [Concomitant]
  4. XANAX [Concomitant]
  5. DIGOXIN [Concomitant]
  6. ENALAPRIL MALEATE [Concomitant]
  7. HYOSCYAMINE (HYOSCYAMINE) [Concomitant]
  8. TRAZODONE (TRAZODONE) [Concomitant]
  9. SUCRALFATE [Concomitant]
  10. COREG [Concomitant]

REACTIONS (6)
  - ABDOMINAL PAIN [None]
  - DIARRHOEA [None]
  - DIVERTICULITIS [None]
  - HAEMATOCHEZIA [None]
  - HIATUS HERNIA [None]
  - STOMACH DISCOMFORT [None]
